FAERS Safety Report 26154760 (Version 1)
Quarter: 2025Q4

REPORT INFORMATION
  Report Type: Spontaneous
  Country: US (occurrence: US)
  Receive Date: 20251215
  Receipt Date: 20251215
  Transmission Date: 20260117
  Serious: No
  Sender: LEO PHARM
  Company Number: US-LEO Pharma-384856

PATIENT
  Age: 26 Year
  Sex: Male

DRUGS (1)
  1. ANZUPGO [Suspect]
     Active Substance: DELGOCITINIB
     Indication: Dermatitis
     Dosage: APPLY A THIN LAYER TOPICALLY TO AFFECTED AREAS ON HANDS 2 TIMES A DAY; TREATMENT IS ONGOING
     Route: 003
     Dates: start: 202512

REACTIONS (2)
  - Product use in unapproved indication [Unknown]
  - Dermatitis [Unknown]
